FAERS Safety Report 10275300 (Version 1)
Quarter: 2014Q2

REPORT INFORMATION
  Report Type: Spontaneous
  Country: US (occurrence: None)
  Receive Date: 20140630
  Receipt Date: 20140630
  Transmission Date: 20141212
  Serious: Yes (Hospitalization)
  Sender: FDA-Public Use
  Company Number: None

PATIENT
  Age: 65 Year
  Sex: Female
  Weight: 78.5 kg

DRUGS (13)
  1. LEFLUNOMIDE [Suspect]
     Indication: RHEUMATOID ARTHRITIS
     Route: 048
  2. SIMPONI [Suspect]
     Route: 058
  3. ASPIRIN [Concomitant]
  4. ZETIA [Concomitant]
  5. CARVEDILOL [Concomitant]
  6. FAMVIR [Concomitant]
  7. FUROSEMIDE [Concomitant]
  8. LOSARTAN [Concomitant]
  9. MONTELUKAST [Concomitant]
  10. NORTRIPTYLINE [Concomitant]
  11. LOVAZA [Concomitant]
  12. REQUIP [Concomitant]
  13. SYNTHROID [Concomitant]

REACTIONS (4)
  - Dyspnoea [None]
  - Haematochezia [None]
  - Abdominal pain [None]
  - Nausea [None]
